FAERS Safety Report 12108611 (Version 1)
Quarter: 2016Q1

REPORT INFORMATION
  Report Type: Spontaneous
  Country: US (occurrence: None)
  Receive Date: 20160222
  Receipt Date: 20160222
  Transmission Date: 20160526
  Serious: Yes (Hospitalization)
  Sender: FDA-Public Use
  Company Number: None

PATIENT
  Age: 82 Year
  Sex: Female

DRUGS (9)
  1. AMIODARONE [Concomitant]
     Active Substance: AMIODARONE
  2. ATORVASTATIN [Concomitant]
     Active Substance: ATORVASTATIN
  3. FAMOTIDINE. [Concomitant]
     Active Substance: FAMOTIDINE
  4. LABETALOL [Concomitant]
     Active Substance: LABETALOL\LABETALOL HYDROCHLORIDE
  5. FUROSEMIDE. [Concomitant]
     Active Substance: FUROSEMIDE
  6. LORAZEPAM. [Concomitant]
     Active Substance: LORAZEPAM
  7. CEFTRIAXONE. [Concomitant]
     Active Substance: CEFTRIAXONE
  8. WARFARIN [Suspect]
     Active Substance: WARFARIN
     Indication: ATRIAL FIBRILLATION
     Dosage: 3.75 MG 3-5 TIMES PER WEEK AND 2.5 DAILY PO
     Route: 048
     Dates: end: 20150829
  9. ASPIRIN. [Suspect]
     Active Substance: ASPIRIN
     Route: 048

REACTIONS (2)
  - Brain midline shift [None]
  - Cerebral haemorrhage [None]

NARRATIVE: CASE EVENT DATE: 20150829
